FAERS Safety Report 19955114 (Version 1)
Quarter: 2021Q4

REPORT INFORMATION
  Report Type: Spontaneous
  Country: BG (occurrence: BG)
  Receive Date: 20211014
  Receipt Date: 20211014
  Transmission Date: 20220303
  Serious: Yes (Other)
  Sender: FDA-Public Use
  Company Number: BG-PFIZER INC-202101360991

PATIENT
  Age: 67 Year
  Sex: Male

DRUGS (1)
  1. SULFASALAZINE [Suspect]
     Active Substance: SULFASALAZINE
     Indication: Rheumatoid arthritis
     Dosage: 2 G, DAILY

REACTIONS (3)
  - Lupus-like syndrome [Recovered/Resolved]
  - Leukopenia [Recovered/Resolved]
  - Lymphopenia [Recovered/Resolved]
